FAERS Safety Report 21560318 (Version 1)
Quarter: 2022Q4

REPORT INFORMATION
  Report Type: Spontaneous
  Country: US (occurrence: None)
  Receive Date: 20221104
  Receipt Date: 20221104
  Transmission Date: 20230112
  Serious: No
  Sender: FDA-Public Use
  Company Number: None

PATIENT

DRUGS (1)
  1. LOSARTAN [Suspect]
     Active Substance: LOSARTAN
     Dosage: FREQUENCY : DAILY;?
     Route: 048

REACTIONS (6)
  - Fatigue [None]
  - Blood pressure increased [None]
  - Wrong product administered [None]
  - Drug monitoring procedure not performed [None]
  - Wrong patient received product [None]
  - Maternal exposure during delivery [None]
